FAERS Safety Report 12478241 (Version 1)
Quarter: 2016Q2

REPORT INFORMATION
  Report Type: Spontaneous
  Country: US (occurrence: US)
  Receive Date: 20160617
  Receipt Date: 20160617
  Transmission Date: 20160815
  Serious: Yes (Hospitalization, Other)
  Sender: FDA-Public Use
  Company Number: US-BRISTOL-MYERS SQUIBB COMPANY-BMS-2016-045565

PATIENT
  Age: 67 Year
  Sex: Female

DRUGS (1)
  1. WARFARIN SODIUM. [Suspect]
     Active Substance: WARFARIN SODIUM
     Indication: ATRIAL FIBRILLATION
     Dosage: 5 MG, QD
     Route: 065

REACTIONS (4)
  - Spinal cord compression [Recovering/Resolving]
  - Haematoma evacuation [Unknown]
  - Epidural haemorrhage [Recovering/Resolving]
  - Spinal laminectomy [Unknown]
